FAERS Safety Report 9279228 (Version 1)
Quarter: 2013Q2

REPORT INFORMATION
  Report Type: Spontaneous
  Country: US (occurrence: US)
  Receive Date: 20130508
  Receipt Date: 20130508
  Transmission Date: 20140414
  Serious: Yes (Other)
  Sender: FDA-Public Use
  Company Number: CHPA2012US026491

PATIENT
  Age: 80 Year
  Sex: Female

DRUGS (4)
  1. MYOFLEX ANALGESIC CREME [Suspect]
     Indication: MUSCULOSKELETAL PAIN
     Dosage: UNK, UNK
     Route: 061
  2. MYOFLEX ANALGESIC CREME [Suspect]
     Indication: BACK PAIN
  3. MYOFLEX ANALGESIC CREME [Suspect]
     Indication: ARTHRITIS
  4. MYOFLEX ANALGESIC CREME [Suspect]
     Indication: PAIN

REACTIONS (4)
  - Intervertebral disc protrusion [Not Recovered/Not Resolved]
  - Procedural pain [Not Recovered/Not Resolved]
  - Arthritis [Unknown]
  - Off label use [Unknown]
